FAERS Safety Report 9712751 (Version 1)
Quarter: 2013Q4

REPORT INFORMATION
  Report Type: Spontaneous
  Country: US (occurrence: US)
  Receive Date: 20131126
  Receipt Date: 20131126
  Transmission Date: 20140711
  Serious: No
  Sender: FDA-Public Use
  Company Number: US-BRISTOL-MYERS SQUIBB COMPANY-19229376

PATIENT
  Age: 56 Year
  Sex: Male
  Weight: 165.07 kg

DRUGS (7)
  1. BYDUREON 2MG SUSPENSION [Suspect]
     Indication: TYPE 2 DIABETES MELLITUS
     Route: 058
     Dates: start: 20130827
  2. INSULIN [Suspect]
  3. LASIX [Concomitant]
  4. COZAAR [Concomitant]
  5. COREG [Concomitant]
  6. VITAMIN D [Concomitant]
  7. CENTRUM SILVER [Concomitant]

REACTIONS (3)
  - Injection site extravasation [Unknown]
  - Underdose [Unknown]
  - Blood glucose increased [Unknown]
